FAERS Safety Report 6255003-1 (Version None)
Quarter: 2009Q3

REPORT INFORMATION
  Report Type: 
  Country: None (occurrence: None)
  Receive Date: 20090702
  Receipt Date: 20090625
  Transmission Date: 20100115
  Serious: Yes (Other)
  Sender: FDA-Public Use
  Company Number: US-ELI_LILLY_AND_COMPANY-US200906005659

PATIENT
  Sex: Female

DRUGS (4)
  1. HUMALOG [Suspect]
     Dosage: UNK, AS NEEDED
  2. HUMALOG [Suspect]
     Dosage: UNK, AS NEEDED
  3. HUMULIN 70/30 [Suspect]
  4. LANTUS [Concomitant]

REACTIONS (11)
  - BACK PAIN [None]
  - BLOOD GLUCOSE DECREASED [None]
  - BLOOD GLUCOSE INCREASED [None]
  - DRUG INEFFECTIVE [None]
  - FALL [None]
  - HAND FRACTURE [None]
  - HIP ARTHROPLASTY [None]
  - JOINT DISLOCATION [None]
  - MEDICATION ERROR [None]
  - PAIN [None]
  - TOOTH INJURY [None]
